FAERS Safety Report 4358128-0 (Version None)
Quarter: 2004Q2

REPORT INFORMATION
  Report Type: 
  Country: None (occurrence: None)
  Receive Date: 20040511
  Receipt Date: 20040426
  Transmission Date: 20050107
  Serious: Yes (Hospitalization)
  Sender: FDA-Public Use
  Company Number: 2004027931

PATIENT
  Age: 63 Year
  Sex: Male

DRUGS (2)
  1. RELPAX [Suspect]
     Indication: MIGRAINE
     Dosage: 40 MG, ORAL
     Route: 048
  2. SUMATRIPTAN SUCCINATE (SUMATRIPTAN) [Suspect]
     Indication: MIGRAINE
     Dosage: 50 MG, ORAL
     Route: 048

REACTIONS (4)
  - APHASIA [None]
  - CEREBRAL INFARCTION [None]
  - CONFUSIONAL STATE [None]
  - MIGRAINE [None]
